FAERS Safety Report 6736548-4 (Version None)
Quarter: 2010Q2

REPORT INFORMATION
  Report Type: 
  Country: None (occurrence: None)
  Receive Date: 20100521
  Receipt Date: 20100512
  Transmission Date: 20101027
  Serious: Yes (Hospitalization)
  Sender: FDA-Public Use
  Company Number: ZA-SANOFI-AVENTIS-2010SA028294

PATIENT
  Sex: Female

DRUGS (8)
  1. LANTUS [Suspect]
     Route: 058
  2. LANTUS [Suspect]
     Dosage: 40IU AT NIGHT + 20 IU DURING DAY
     Route: 058
  3. LANTUS [Suspect]
     Dosage: 40IU AT NIGHT + 30 IU DURING DAY
     Route: 058
  4. TAREG [Concomitant]
     Indication: HYPERTENSION
     Route: 048
  5. INDAPAMIDE [Concomitant]
     Indication: HYPERTENSION
     Route: 048
  6. AMLOC [Concomitant]
     Indication: HYPERTENSION
     Route: 048
  7. PRATSIOL [Concomitant]
     Route: 048
  8. GLUCOVANCE [Concomitant]
     Dosage: 500/2.5MG

REACTIONS (2)
  - HYPERGLYCAEMIA [None]
  - PRODUCT QUALITY ISSUE [None]
